FAERS Safety Report 14168239 (Version 1)
Quarter: 2017Q4

REPORT INFORMATION
  Report Type: Spontaneous
  Country: US (occurrence: US)
  Receive Date: 20171107
  Receipt Date: 20171107
  Transmission Date: 20180321
  Serious: No
  Sender: FDA-Public Use
  Company Number: US-SA-2017SA105692

PATIENT
  Sex: Male

DRUGS (3)
  1. SOLOSTAR [Concomitant]
     Active Substance: DEVICE
  2. CLONIDINE. [Concomitant]
     Active Substance: CLONIDINE
  3. TOUJEO [Suspect]
     Active Substance: INSULIN GLARGINE
     Indication: DIABETES MELLITUS
     Dosage: FREQUENCY- INTERMITTENTLY DEPENDING ON HIS BLOOD SUGARS
     Route: 051

REACTIONS (1)
  - Blood glucose increased [Unknown]
